FAERS Safety Report 9911700 (Version 1)
Quarter: 2014Q1

REPORT INFORMATION
  Report Type: Spontaneous
  Country: US (occurrence: US)
  Receive Date: 20140219
  Receipt Date: 20140219
  Transmission Date: 20141002
  Serious: No
  Sender: FDA-Public Use
  Company Number: US-ASTRAZENECA-2013SE87405

PATIENT
  Sex: Female

DRUGS (2)
  1. ZESTORETIC [Suspect]
     Indication: HYPERTENSION
     Route: 048
  2. ZESTORETIC [Suspect]
     Indication: HYPERTENSION
     Dosage: GENERIC
     Route: 048

REACTIONS (6)
  - Blood pressure abnormal [Not Recovered/Not Resolved]
  - Rash [Unknown]
  - Dizziness [Unknown]
  - Palpitations [Unknown]
  - Adverse drug reaction [Not Recovered/Not Resolved]
  - Intentional drug misuse [Not Recovered/Not Resolved]
